FAERS Safety Report 7183088-7 (Version None)
Quarter: 2010Q4

REPORT INFORMATION
  Report Type: 
  Country: None (occurrence: None)
  Receive Date: 20101222
  Receipt Date: 20101018
  Transmission Date: 20110411
  Serious: No
  Sender: FDA-Public Use
  Company Number: A0887407A

PATIENT
  Age: 48 Year
  Sex: Female

DRUGS (2)
  1. RYTHMOL [Suspect]
     Indication: ATRIAL FIBRILLATION
     Dosage: 225MG TWICE PER DAY
     Route: 048
     Dates: start: 20100901
  2. ZYRTEC [Concomitant]

REACTIONS (2)
  - DRY EYE [None]
  - OCULAR HYPERAEMIA [None]
